FAERS Safety Report 7390481-6 (Version None)
Quarter: 2011Q2

REPORT INFORMATION
  Report Type: 
  Country: None (occurrence: None)
  Receive Date: 20110401
  Receipt Date: 20110323
  Transmission Date: 20111010
  Serious: Yes (Hospitalization)
  Sender: FDA-Public Use
  Company Number: JP-RB-025010-11

PATIENT
  Age: 84 Year

DRUGS (2)
  1. LEPETAN INJECTION [Suspect]
     Indication: SEDATION
     Route: 041
     Dates: end: 20110316
  2. MIDAZOLAM [Suspect]
     Indication: SEDATION
     Route: 041
     Dates: end: 20110316

REACTIONS (3)
  - DEPRESSED LEVEL OF CONSCIOUSNESS [None]
  - SEDATION [None]
  - DEHYDRATION [None]
